FAERS Safety Report 4666249-8 (Version None)
Quarter: 2005Q2

REPORT INFORMATION
  Report Type: 
  Country: None (occurrence: None)
  Receive Date: 20050518
  Receipt Date: 20050518
  Transmission Date: 20051028
  Serious: Yes (Other)
  Sender: FDA-Public Use
  Company Number: None

PATIENT
  Age: 68 Year
  Sex: Female
  Weight: 61.6892 kg

DRUGS (7)
  1. ZOCOR [Suspect]
     Indication: HYPERLIPIDAEMIA
     Dosage: ONE PO QD
     Route: 048
  2. NEXIUM [Concomitant]
  3. TINDAL [Concomitant]
  4. CELEBREX [Concomitant]
  5. ASTELIN [Concomitant]
  6. ZYRTEC [Concomitant]
  7. REGLAN [Concomitant]

REACTIONS (1)
  - ALOPECIA AREATA [None]
